FAERS Safety Report 9702230 (Version 1)
Quarter: 2013Q4

REPORT INFORMATION
  Report Type: Spontaneous
  Country: FR (occurrence: FR)
  Receive Date: 20131121
  Receipt Date: 20131121
  Transmission Date: 20140711
  Serious: Yes (Life-Threatening, Hospitalization)
  Sender: FDA-Public Use
  Company Number: FR-ROCHE-1304302

PATIENT
  Age: 63 Year
  Sex: Female

DRUGS (10)
  1. MABTHERA [Suspect]
     Indication: RICHTER^S SYNDROME
     Dosage: 6 CYCLES IN 2005-2006, 4 CYCLES IN 2009, 4 CYCLES IN 2010, ONE CYCLE ON 05/JUL/2013 AND ON 25/JUL/20
     Route: 042
     Dates: start: 2005, end: 20130725
  2. LEVACT (FRANCE) [Suspect]
     Indication: RICHTER^S SYNDROME
     Dosage: 2.5 MG/ML, ONE CYCLE ON 05-JUL-2013
     Route: 042
     Dates: start: 20130705, end: 20130705
  3. DEXAMETHASONE [Suspect]
     Indication: RICHTER^S SYNDROME
     Dosage: ONE CYCLE ON 25-JUL-2013.
     Route: 042
     Dates: start: 20130725, end: 20130725
  4. CYTARABINE [Suspect]
     Indication: RICHTER^S SYNDROME
     Dosage: ONE CYCLE ON 25-JUL-2013.
     Route: 042
     Dates: start: 20130725, end: 20130725
  5. OXALIPLATIN [Suspect]
     Indication: RICHTER^S SYNDROME
     Dosage: ONE CYCLE ON 25-JUL-2013.
     Route: 042
     Dates: start: 20130725, end: 20130725
  6. AUGMENTIN [Concomitant]
     Route: 048
     Dates: start: 20130818
  7. FLAGYL [Concomitant]
     Route: 048
     Dates: start: 20130818, end: 20130828
  8. LYRICA [Concomitant]
     Route: 048
     Dates: start: 20130818, end: 20130828
  9. ZELITREX [Concomitant]
     Route: 048
     Dates: start: 20130818
  10. BACTRIM FORTE [Concomitant]
     Route: 048
     Dates: start: 20130818

REACTIONS (2)
  - JC virus infection [Unknown]
  - Progressive multifocal leukoencephalopathy [Unknown]
